FAERS Safety Report 4765281-3 (Version None)
Quarter: 2005Q3

REPORT INFORMATION
  Report Type: 
  Country: None (occurrence: None)
  Receive Date: 20050909
  Receipt Date: 20050311
  Transmission Date: 20060218
  Serious: Yes (Hospitalization)
  Sender: FDA-Public Use
  Company Number: US-MERCK-0503USA02660

PATIENT
  Age: 64 Year
  Sex: Female
  Weight: 61 kg

DRUGS (3)
  1. VIOXX [Suspect]
     Indication: ARTHRITIS
     Route: 048
     Dates: start: 19990101, end: 20020211
  2. VIOXX [Suspect]
     Route: 048
     Dates: start: 20020211, end: 20020311
  3. VIOXX [Suspect]
     Route: 048
     Dates: start: 20020311, end: 20031101

REACTIONS (60)
  - ACQUIRED OESOPHAGEAL WEB [None]
  - ACUTE RESPIRATORY FAILURE [None]
  - ANAEMIA [None]
  - ANAEMIA VITAMIN B12 DEFICIENCY [None]
  - ANOREXIA [None]
  - ANXIETY [None]
  - ATRIAL FIBRILLATION [None]
  - ATRIAL FLUTTER [None]
  - BLADDER DISORDER [None]
  - BLOOD CHOLESTEROL INCREASED [None]
  - BLOOD DISORDER [None]
  - BLOOD TRIGLYCERIDES INCREASED [None]
  - BRONCHOSPASM [None]
  - CARDIAC FAILURE CONGESTIVE [None]
  - CAROTID ARTERY STENOSIS [None]
  - CELLULITIS [None]
  - CEREBRAL ARTERY OCCLUSION [None]
  - CEREBROVASCULAR ACCIDENT [None]
  - CHEST PAIN [None]
  - COAGULOPATHY [None]
  - COMPRESSION FRACTURE [None]
  - CONGESTIVE CARDIOMYOPATHY [None]
  - CONSTIPATION [None]
  - DIARRHOEA [None]
  - DISCOMFORT [None]
  - DYSPEPSIA [None]
  - DYSPHAGIA [None]
  - FALL [None]
  - FLUID RETENTION [None]
  - GAIT DISTURBANCE [None]
  - GASTRIC ULCER [None]
  - GASTRITIS EROSIVE [None]
  - GLUCOSE TOLERANCE IMPAIRED [None]
  - HALLUCINATION [None]
  - HYPERTENSION [None]
  - HYPERTHYROIDISM [None]
  - HYPOKALAEMIA [None]
  - HYPOXIA [None]
  - INCONTINENCE [None]
  - INTERVERTEBRAL DISC DEGENERATION [None]
  - LIBIDO DECREASED [None]
  - LIPODYSTROPHY ACQUIRED [None]
  - LYMPHOPENIA [None]
  - NAUSEA [None]
  - NEPHROLITHIASIS [None]
  - NEUROPATHY [None]
  - NEUROPATHY PERIPHERAL [None]
  - OSTEOARTHRITIS [None]
  - PAIN [None]
  - PANIC ATTACK [None]
  - PERIPHERAL VASCULAR DISORDER [None]
  - PNEUMONIA [None]
  - PULMONARY OEDEMA [None]
  - SPINAL COMPRESSION FRACTURE [None]
  - SUPRAVENTRICULAR TACHYCARDIA [None]
  - TRANSIENT ISCHAEMIC ATTACK [None]
  - URETHRAL STRICTURE [None]
  - URINARY TRACT INFECTION [None]
  - VITAMIN B12 DEFICIENCY [None]
  - WEIGHT INCREASED [None]
